FAERS Safety Report 20906904 (Version 3)
Quarter: 2022Q4

REPORT INFORMATION
  Report Type: Report from Study
  Country: ES (occurrence: ES)
  Receive Date: 20220602
  Receipt Date: 20221102
  Transmission Date: 20230113
  Serious: Yes (Hospitalization)
  Sender: FDA-Public Use
  Company Number: ES-Accord-240005

PATIENT
  Age: 69 Year
  Sex: Male
  Weight: 91 kg

DRUGS (29)
  1. RITUXIMAB [Suspect]
     Active Substance: RITUXIMAB
     Indication: B-cell lymphoma
     Dosage: DATE OF LAST DOSE PRIOR TO EVENT: 19/JUL/2021
     Route: 042
     Dates: start: 20210719, end: 20210719
  2. DEXAMETHASONE SODIUM PHOSPHATE [Suspect]
     Active Substance: DEXAMETHASONE SODIUM PHOSPHATE
     Indication: B-cell lymphoma
     Dosage: REGIMEN 1 DRUG INTERRUPTED.
     Route: 042
     Dates: start: 20210719, end: 20210720
  3. OXALIPLATIN [Suspect]
     Active Substance: OXALIPLATIN
     Indication: B-cell lymphoma
     Route: 042
     Dates: start: 20210719, end: 20210719
  4. CYTARABINE [Suspect]
     Active Substance: CYTARABINE
     Indication: B-cell lymphoma
     Dosage: SINGLE?REGIMEN 1
     Route: 042
     Dates: start: 20210720, end: 20210720
  5. EPCORITAMAB [Suspect]
     Active Substance: EPCORITAMAB
     Indication: B-cell lymphoma
     Dosage: PRIMING DOSE: 0.16MG, SINGLE?DUOBODY-CD3XCD20, REGIMEN1?PRIOR TO THE EVENT ONSET, THE PATIENT RECEIV
     Route: 058
     Dates: start: 20210719, end: 20210719
  6. COVID-19 VACCINE [Concomitant]
     Dosage: 1ST DOSE
     Dates: start: 20210616
  7. COVID-19 VACCINE [Concomitant]
     Dosage: 2ND DOSE
     Dates: start: 20210804
  8. LOSARTAN [Concomitant]
     Active Substance: LOSARTAN
     Dates: start: 20180208
  9. DEXCHLORPHENIRAMINE MALEATE [Concomitant]
     Active Substance: DEXCHLORPHENIRAMINE MALEATE
     Route: 042
     Dates: start: 20210719, end: 20210719
  10. ACETAMINOPHEN [Concomitant]
     Active Substance: ACETAMINOPHEN
     Route: 048
     Dates: start: 20210719, end: 20210719
  11. ACETAMINOPHEN [Concomitant]
     Active Substance: ACETAMINOPHEN
     Dates: start: 20210823, end: 20210823
  12. HYDROCHLOROTHIAZIDE [Concomitant]
     Active Substance: HYDROCHLOROTHIAZIDE
     Dates: start: 20180208
  13. INSULIN NOS [Concomitant]
     Active Substance: INSULIN NOS
     Dates: start: 20210725
  14. NOREPINEPHRINE [Concomitant]
     Active Substance: NOREPINEPHRINE
     Dates: start: 20210829, end: 20210830
  15. RASBURICASE [Concomitant]
     Active Substance: RASBURICASE
     Dates: start: 20210830, end: 20210830
  16. MEROPENEM [Concomitant]
     Active Substance: MEROPENEM
     Dates: start: 20210829, end: 20210911
  17. POSACONAZOLE [Concomitant]
     Active Substance: POSACONAZOLE
     Dates: start: 20210722
  18. AMIODARONE [Concomitant]
     Active Substance: AMIODARONE
     Dates: start: 20210830, end: 20210830
  19. MOVICOL [Concomitant]
     Active Substance: POLYETHYLENE GLYCOL 3350\POTASSIUM CHLORIDE\SODIUM BICARBONATE\SODIUM CHLORIDE
     Dates: start: 20210812, end: 20210812
  20. AMIKACIN [Concomitant]
     Active Substance: AMIKACIN
     Dates: start: 20210826
  21. METHYLPREDNISOLONE [Concomitant]
     Active Substance: METHYLPREDNISOLONE
     Dates: start: 20210830, end: 20210830
  22. PREGABALIN [Concomitant]
     Active Substance: PREGABALIN
     Dates: start: 20210719
  23. ADENOSINE [Concomitant]
     Active Substance: ADENOSINE
     Dates: start: 20210830, end: 20210830
  24. CEFTRIAXONE [Concomitant]
     Active Substance: CEFTRIAXONE
     Dates: start: 20210824, end: 20210904
  25. METAMIZOLE [Concomitant]
     Active Substance: METAMIZOLE
     Dates: start: 20210823, end: 20210823
  26. CYCLOPHOSPHAMIDE [Concomitant]
     Active Substance: CYCLOPHOSPHAMIDE
     Dates: start: 20210830, end: 20210830
  27. CYCLOPHOSPHAMIDE [Concomitant]
     Active Substance: CYCLOPHOSPHAMIDE
     Dates: start: 20200327, end: 20200610
  28. AMIKACIN [Concomitant]
     Active Substance: AMIKACIN
  29. AMIODARONE [Concomitant]
     Active Substance: AMIODARONE
     Dosage: AMIODARONE BOLUS

REACTIONS (1)
  - Immune effector cell-associated neurotoxicity syndrome [Recovered/Resolved]

NARRATIVE: CASE EVENT DATE: 20210721
